FAERS Safety Report 5224124-4 (Version None)
Quarter: 2007Q1

REPORT INFORMATION
  Report Type: 
  Country: None (occurrence: None)
  Receive Date: 20070126
  Receipt Date: 20070111
  Transmission Date: 20070707
  Serious: Yes (Hospitalization)
  Sender: FDA-Public Use
  Company Number: 2007000087

PATIENT
  Age: 61 Year
  Sex: Male

DRUGS (8)
  1. TARCEVA [Suspect]
     Indication: NON-SMALL CELL LUNG CANCER
     Dosage: 150 MG (QD), ORAL
     Route: 048
     Dates: start: 20060615
  2. RAMIPRIL [Concomitant]
  3. FUROBETA (FUROSEMIDE) [Concomitant]
  4. SIMVASTATIN [Concomitant]
  5. DIGITOXIN TAB [Concomitant]
  6. ACTRAPID [Concomitant]
  7. PROTAPHANE [Concomitant]
  8. CONTRAST MEDIUM [Concomitant]

REACTIONS (4)
  - DRUG INTERACTION [None]
  - HERPES ZOSTER [None]
  - TYPE I HYPERSENSITIVITY [None]
  - TYPE IV HYPERSENSITIVITY REACTION [None]
